FAERS Safety Report 6976209-X (Version None)
Quarter: 2010Q3

REPORT INFORMATION
  Report Type: 
  Country: None (occurrence: None)
  Receive Date: 20100910
  Receipt Date: 20100831
  Transmission Date: 20110219
  Serious: Yes (Other)
  Sender: FDA-Public Use
  Company Number: US-PFIZER INC-2010112701

PATIENT
  Sex: Female
  Weight: 95.238 kg

DRUGS (9)
  1. GEODON [Suspect]
     Indication: MANIA
     Dosage: 40 MG, UNK
     Dates: start: 20100826
  2. XANAX [Suspect]
     Dosage: UNK
  3. EFFEXOR [Suspect]
     Indication: BIPOLAR DISORDER
     Dosage: UNK
  4. EFFEXOR [Suspect]
     Indication: DEPRESSION
  5. VENLAFAXINE [Suspect]
     Indication: BIPOLAR DISORDER
     Dosage: 150 MG, DAILY
  6. VENLAFAXINE [Suspect]
     Indication: DEPRESSION
  7. LITHIUM [Suspect]
     Dosage: 450 MG, UNK
  8. LEVOTHYROXINE [Suspect]
     Indication: THYROID DISORDER
     Dosage: UNK
  9. VALSARTAN [Concomitant]
     Indication: HYPERTENSION
     Dosage: UNK

REACTIONS (19)
  - AGITATION [None]
  - BALANCE DISORDER [None]
  - BLOOD CREATININE INCREASED [None]
  - BLOOD TRIGLYCERIDES INCREASED [None]
  - DEPRESSION [None]
  - DIABETES MELLITUS [None]
  - DRUG LEVEL BELOW THERAPEUTIC [None]
  - FATIGUE [None]
  - FEELING ABNORMAL [None]
  - HEART RATE INCREASED [None]
  - HYPERSENSITIVITY [None]
  - HYPOTENSION [None]
  - MANIA [None]
  - MENTAL DISORDER [None]
  - MENTAL IMPAIRMENT [None]
  - PANIC ATTACK [None]
  - PERSONALITY DISORDER [None]
  - RENAL FUNCTION TEST ABNORMAL [None]
  - RENAL IMPAIRMENT [None]
